FAERS Safety Report 7896900-0 (Version None)
Quarter: 2011Q4

REPORT INFORMATION
  Report Type: 
  Country: None (occurrence: None)
  Receive Date: 20111031
  Receipt Date: 20100930
  Transmission Date: 20120403
  Serious: Yes (Other)
  Sender: FDA-Public Use
  Company Number: 708167

PATIENT
  Age: 51 Year
  Sex: Female
  Weight: 78.64 kg

DRUGS (1)
  1. AMIDATE [Suspect]
     Indication: ANAESTHESIA
     Dosage: INTRAVENOUS
     Route: 042
     Dates: start: 20100916, end: 20100916

REACTIONS (1)
  - INFUSION SITE THROMBOSIS [None]
